FAERS Safety Report 7647272-8 (Version None)
Quarter: 2011Q3

REPORT INFORMATION
  Report Type: 
  Country: None (occurrence: None)
  Receive Date: 20110801
  Receipt Date: 20110725
  Transmission Date: 20111222
  Serious: Yes (Death)
  Sender: FDA-Public Use
  Company Number: US-CELGENEUS-163-21880-11032656

PATIENT
  Sex: Male

DRUGS (15)
  1. LIPITOR [Concomitant]
     Route: 048
  2. OSTEO BI-FLEX [Concomitant]
     Route: 048
  3. FERROUS SULFATE TAB [Concomitant]
     Dosage: 1
     Route: 048
  4. OMEPRAZOLE [Concomitant]
     Dosage: 1
     Route: 048
  5. RED BLOOD CELLS [Concomitant]
     Indication: TRANSFUSION
     Dosage: 2 UNITS
     Route: 041
  6. PAROXETINE HCL [Concomitant]
     Dosage: 40 MILLIGRAM
     Route: 048
  7. PRESURVISION [Concomitant]
     Route: 048
  8. STOOL SOFTENER [Concomitant]
     Dosage: 1
     Route: 048
  9. TOPROL-XL [Concomitant]
     Dosage: SR 24 HR
     Route: 048
  10. VITAMIN A [Concomitant]
     Route: 061
  11. ASPIRIN [Concomitant]
     Route: 048
  12. VEGETABLE LAXATIVE [Concomitant]
     Route: 048
  13. ACTOS [Concomitant]
     Dosage: 1
     Route: 048
  14. RISPERDAL [Concomitant]
     Route: 048
  15. REVLIMID [Suspect]
     Dosage: 5 MILLIGRAM
     Route: 048
     Dates: start: 20110101, end: 20110223

REACTIONS (2)
  - MYELODYSPLASTIC SYNDROME [None]
  - DIARRHOEA [None]
